FAERS Safety Report 15425969 (Version 2)
Quarter: 2018Q3

REPORT INFORMATION
  Report Type: Spontaneous
  Country: NL (occurrence: NL)
  Receive Date: 20180925
  Receipt Date: 20180928
  Transmission Date: 20181010
  Serious: Yes (Death)
  Sender: FDA-Public Use
  Company Number: PHHY2018NL100643

PATIENT
  Age: 15 Year
  Sex: Male

DRUGS (2)
  1. CEFTRIAXONE. [Suspect]
     Active Substance: CEFTRIAXONE
     Indication: MENINGOCOCCAL SEPSIS
     Route: 065
  2. FLUCLOXACILLIN [Suspect]
     Active Substance: FLUCLOXACILLIN
     Indication: MENINGOCOCCAL SEPSIS
     Route: 065

REACTIONS (3)
  - Heart rate decreased [Fatal]
  - Hypotension [Fatal]
  - Meningococcal sepsis [Fatal]
